FAERS Safety Report 13350322 (Version 1)
Quarter: 2017Q1

REPORT INFORMATION
  Report Type: Spontaneous
  Country: CN (occurrence: CN)
  Receive Date: 20170320
  Receipt Date: 20170320
  Transmission Date: 20170429
  Serious: Yes (Hospitalization, Other)
  Sender: FDA-Public Use
  Company Number: CN-ASTELLAS-2017US010737

PATIENT
  Age: 44 Year
  Sex: Female

DRUGS (6)
  1. MICAFUNGIN [Suspect]
     Active Substance: MICAFUNGIN
     Indication: ANTIFUNGAL TREATMENT
     Route: 065
  2. TIGECYCLINE. [Concomitant]
     Active Substance: TIGECYCLINE
     Indication: ANTI-INFECTIVE THERAPY
     Route: 065
  3. MOXIFLOXACIN. [Concomitant]
     Active Substance: MOXIFLOXACIN
     Indication: ANTI-INFECTIVE THERAPY
     Route: 065
  4. OSELTAMIVIR [Concomitant]
     Active Substance: OSELTAMIVIR
     Indication: AVIAN INFLUENZA
     Route: 065
  5. METHYLPREDNISOLON                  /00049601/ [Concomitant]
     Active Substance: METHYLPREDNISOLONE
     Indication: STEROID THERAPY
     Route: 065
  6. TIENAM [Concomitant]
     Active Substance: CILASTATIN SODIUM\IMIPENEM
     Indication: ANTI-INFECTIVE THERAPY
     Route: 065

REACTIONS (4)
  - Acinetobacter infection [Recovered/Resolved]
  - Bronchial haemorrhage [Recovered/Resolved]
  - Thrombocytopenia [Recovered/Resolved]
  - Haemorrhage subcutaneous [Recovered/Resolved]
